FAERS Safety Report 8909594 (Version 3)
Quarter: 2013Q1

REPORT INFORMATION
  Report Type: Spontaneous
  Country: US (occurrence: None)
  Receive Date: 20121107
  Receipt Date: 20130111
  Transmission Date: 20140127
  Serious: Yes (Other)
  Sender: FDA-Public Use
  Company Number: AUR-APL-2012-04685

PATIENT
  Sex: Female

DRUGS (2)
  1. LISINOPRIL (LISINOPRIL) [Suspect]
     Indication: PRODUCT USED FOR UNKNOWN INDICATION
  2. PRISTIQ [Suspect]
     Indication: DEPRESSION
     Dosage: (50  MG), UNKNOWN
     Route: 048

REACTIONS (10)
  - Drug ineffective [None]
  - Confusional state [None]
  - Dementia [None]
  - Feeling abnormal [None]
  - Malaise [None]
  - Mobility decreased [None]
  - Abasia [None]
  - Dizziness [None]
  - Suicidal ideation [None]
  - Depression [None]
